FAERS Safety Report 8862266 (Version 1)
Quarter: 2012Q4

REPORT INFORMATION
  Report Type: 
  Country: GB (occurrence: GB)
  Receive Date: 20121026
  Receipt Date: 20121026
  Transmission Date: 20130627
  Serious: Yes (Other)
  Sender: FDA-Public Use
  Company Number: GB-ROCHE-1148745

PATIENT

DRUGS (2)
  1. CAPECITABINE [Suspect]
     Indication: BREAST CANCER METASTATIC
     Dosage: day1-14
     Route: 048
  2. VINORELBINE [Suspect]
     Indication: BREAST CANCER METASTATIC
     Dosage: 60-80 mg/m2, day1,8
     Route: 048

REACTIONS (5)
  - Haematotoxicity [Unknown]
  - Gastrointestinal toxicity [Unknown]
  - Skin toxicity [Unknown]
  - Erythema multiforme [Unknown]
  - Palmar-plantar erythrodysaesthesia syndrome [Unknown]
